FAERS Safety Report 9562209 (Version 2)
Quarter: 2013Q4

REPORT INFORMATION
  Report Type: Spontaneous
  Country: US (occurrence: US)
  Receive Date: 20130927
  Receipt Date: 20131030
  Transmission Date: 20140711
  Serious: Yes (Hospitalization)
  Sender: FDA-Public Use
  Company Number: PHEH2013US020092

PATIENT
  Age: 33 Year
  Sex: Female
  Weight: 139 kg

DRUGS (3)
  1. CLOZARIL [Suspect]
     Indication: SCHIZOAFFECTIVE DISORDER
     Dosage: 100 MG DAILY
     Route: 048
     Dates: start: 20080119, end: 20130814
  2. HALDOL [Concomitant]
     Indication: SCHIZOAFFECTIVE DISORDER
     Dosage: 7 MG PER DAY
     Route: 048
     Dates: start: 20080119, end: 20130814
  3. LITHIUM [Concomitant]
     Dosage: 600MG TO 900 MG PER DAY
     Route: 048
     Dates: start: 20060610, end: 20130814

REACTIONS (9)
  - Psychiatric decompensation [Unknown]
  - Thought insertion [Unknown]
  - Abnormal behaviour [Unknown]
  - Thinking abnormal [Unknown]
  - Mood swings [Unknown]
  - Delusion [Unknown]
  - Malaise [Unknown]
  - Fatigue [Recovered/Resolved]
  - Antipsychotic drug level below therapeutic [Unknown]
